FAERS Safety Report 9505157 (Version 4)
Quarter: 2014Q2

REPORT INFORMATION
  Report Type: Report from Study
  Country: ZA (occurrence: ZA)
  Receive Date: 20130906
  Receipt Date: 20140521
  Transmission Date: 20141212
  Serious: Yes (Death, Hospitalization, Other)
  Sender: FDA-Public Use
  Company Number: ZA-GILEAD-2013-0082749

PATIENT
  Age: 54 Year
  Sex: Female
  Weight: 52 kg

DRUGS (8)
  1. EFAVIRENZ/EMTRICITABINE/TENOFOVIR DISOPROXIL FUMARATE [Suspect]
     Indication: HIV INFECTION
     Dosage: 1 DF, QD
     Route: 048
     Dates: start: 20130513
  2. HYDROCHLOROTHIAZIDE [Suspect]
     Indication: HYPERTENSION
     Dosage: 12.5 MG, QD
     Route: 048
     Dates: start: 20130430
  3. ENALAPRIL [Suspect]
     Indication: PRODUCT USED FOR UNKNOWN INDICATION
     Dosage: 10 MG, UNK
     Route: 048
  4. ISONIAZID [Concomitant]
     Indication: ANTIBIOTIC PROPHYLAXIS
     Dosage: UNK
     Dates: start: 20130606
  5. BACTRIM [Concomitant]
     Dosage: 960 MG, QD
     Dates: start: 201307
  6. FLAGYL                             /00012501/ [Concomitant]
     Dosage: 500 MG, TID
     Route: 042
     Dates: start: 201307
  7. BUSCOPAN [Concomitant]
     Dosage: 10 MG, TID
     Dates: start: 201307
  8. MAXOLON [Concomitant]
     Dosage: 10 MG, TID
     Dates: start: 201307

REACTIONS (2)
  - Gastroenteritis [Recovered/Resolved]
  - Renal failure acute [Fatal]
